FAERS Safety Report 24535679 (Version 1)
Quarter: 2024Q4

REPORT INFORMATION
  Report Type: Spontaneous
  Country: BE (occurrence: BE)
  Receive Date: 20241022
  Receipt Date: 20241022
  Transmission Date: 20250115
  Serious: No
  Sender: JAZZ
  Company Number: BE-JAZZ PHARMACEUTICALS-2024-BE-007105

PATIENT

DRUGS (1)
  1. XYREM [Suspect]
     Active Substance: SODIUM OXYBATE
     Indication: Withdrawal syndrome
     Dosage: UNK
     Route: 048

REACTIONS (1)
  - Off label use [Unknown]
